FAERS Safety Report 22023317 (Version 2)
Quarter: 2023Q1

REPORT INFORMATION
  Report Type: Report from Study
  Country: US (occurrence: US)
  Receive Date: 20230223
  Receipt Date: 20230303
  Transmission Date: 20230418
  Serious: Yes (Other)
  Sender: FDA-Public Use
  Company Number: US-BIOVITRUM-2023US01802

PATIENT
  Age: 61 Year
  Sex: Male

DRUGS (1)
  1. KINERET [Suspect]
     Active Substance: ANAKINRA
     Dates: start: 20230131

REACTIONS (20)
  - Pyrexia [Unknown]
  - Off label use [Unknown]
  - Injection site pain [Unknown]
  - Paraesthesia oral [Unknown]
  - Swelling face [Unknown]
  - Oropharyngeal pain [Unknown]
  - Injection site reaction [Unknown]
  - Hypersensitivity [Unknown]
  - Lip swelling [Unknown]
  - Influenza like illness [Unknown]
  - Blister infected [Unknown]
  - Product dose omission issue [Unknown]
  - Still^s disease [Unknown]
  - Condition aggravated [Unknown]
  - Abdominal distension [Unknown]
  - Erythema [Unknown]
  - Musculoskeletal stiffness [Unknown]
  - Myalgia [Unknown]
  - Peripheral swelling [Unknown]
  - Blister [Unknown]

NARRATIVE: CASE EVENT DATE: 20230131
